FAERS Safety Report 9454407 (Version 1)
Quarter: 2013Q3

REPORT INFORMATION
  Report Type: Spontaneous
  Country: US (occurrence: US)
  Receive Date: 20130812
  Receipt Date: 20130812
  Transmission Date: 20140515
  Serious: Yes (Other)
  Sender: FDA-Public Use
  Company Number: US-PFIZER INC-2013231751

PATIENT
  Age: 53 Year
  Sex: Male
  Weight: 82.09 kg

DRUGS (8)
  1. CARBOPLATIN [Suspect]
     Dosage: UNK
  2. XALKORI [Suspect]
     Indication: NON-SMALL CELL LUNG CANCER
     Dosage: 250 MG, 2X/DAY
     Route: 048
     Dates: start: 20130612
  3. PEMETREXED [Suspect]
     Dosage: UNK
  4. ZOLOFT [Concomitant]
     Indication: BIPOLAR DISORDER
     Dosage: 100 MG, 1X/DAY
  5. WELLBUTRIN [Concomitant]
     Indication: BIPOLAR DISORDER
     Dosage: 150 MG, 2X/DAY
  6. DEPAKOTE [Concomitant]
     Indication: BIPOLAR DISORDER
     Dosage: 500 MG, 2X/DAY
  7. LORTAB [Concomitant]
     Dosage: UNK, AS NEEDED
  8. FOLIC ACID [Concomitant]
     Dosage: 1 MG, 1X/DAY

REACTIONS (2)
  - Pneumonitis [Unknown]
  - Nausea [Unknown]
